FAERS Safety Report 5495524-2 (Version None)
Quarter: 2007Q4

REPORT INFORMATION
  Report Type: 
  Country: None (occurrence: None)
  Receive Date: 20071017
  Receipt Date: 20061018
  Transmission Date: 20080405
  Serious: Yes (Hospitalization)
  Sender: FDA-Public Use
  Company Number: 06P-163-0340410-00

PATIENT
  Age: 8 Year
  Sex: Female
  Weight: 20.4119 kg

DRUGS (2)
  1. DEPAKOTE SPRINKLE CAPSULES                                (DEPAKOTE) [Suspect]
     Indication: GRAND MAL CONVULSION
     Dosage: 125 MG, 7 IN 1 D, PER ORAL
     Route: 048
     Dates: start: 20010101
  2. CLONAZEPAM [Concomitant]

REACTIONS (2)
  - DRUG LEVEL DECREASED [None]
  - GRAND MAL CONVULSION [None]
